FAERS Safety Report 8012331-7 (Version None)
Quarter: 2011Q4

REPORT INFORMATION
  Report Type: 
  Country: None (occurrence: None)
  Receive Date: 20111228
  Receipt Date: 20111221
  Transmission Date: 20120403
  Serious: Yes (Other)
  Sender: FDA-Public Use
  Company Number: US-TEVA-314525USA

PATIENT
  Sex: Female

DRUGS (1)
  1. CENESTIN [Suspect]
     Dates: start: 20000101

REACTIONS (5)
  - PSYCHOMOTOR HYPERACTIVITY [None]
  - HYPERHIDROSIS [None]
  - WITHDRAWAL SYNDROME [None]
  - TEARFULNESS [None]
  - DRUG INEFFECTIVE [None]
